FAERS Safety Report 7756008-1 (Version None)
Quarter: 2011Q3

REPORT INFORMATION
  Report Type: 
  Country: None (occurrence: None)
  Receive Date: 20110916
  Receipt Date: 20110913
  Transmission Date: 20111222
  Serious: No
  Sender: FDA-Public Use
  Company Number: FR-SANOFI-AVENTIS-2011SA020065

PATIENT
  Age: 68 Year
  Sex: Male
  Weight: 93 kg

DRUGS (5)
  1. COUMADIN [Concomitant]
     Route: 048
     Dates: start: 20101101
  2. MULTAQ [Suspect]
     Route: 048
     Dates: start: 20101119, end: 20101201
  3. PREVISCAN [Concomitant]
     Route: 048
     Dates: start: 20101201
  4. EZETIMIBE [Concomitant]
     Route: 048
  5. CORDARONE [Suspect]
     Route: 048
     Dates: start: 20101201

REACTIONS (1)
  - URTICARIA [None]
